FAERS Safety Report 12577503 (Version 1)
Quarter: 2016Q3

REPORT INFORMATION
  Report Type: Report from Study
  Country: DE (occurrence: DE)
  Receive Date: 20160720
  Receipt Date: 20160720
  Transmission Date: 20161109
  Serious: Yes (Hospitalization, Other)
  Sender: FDA-Public Use
  Company Number: DE-ABBVIE-16K-062-1676472-00

PATIENT
  Age: 53 Year
  Sex: Female

DRUGS (2)
  1. HUMINSULIN [Concomitant]
     Active Substance: INSULIN HUMAN
     Indication: PRODUCT USED FOR UNKNOWN INDICATION
  2. HUMIRA [Suspect]
     Active Substance: ADALIMUMAB
     Indication: CROHN^S DISEASE
     Route: 058
     Dates: start: 20080703

REACTIONS (9)
  - Stress [Unknown]
  - Gastrointestinal fistula [Recovered/Resolved]
  - Road traffic accident [Unknown]
  - Crohn^s disease [Recovered/Resolved]
  - Pyrexia [Unknown]
  - Gastrointestinal disorder [Not Recovered/Not Resolved]
  - Abdominal pain [Not Recovered/Not Resolved]
  - Shock [Unknown]
  - Hypertension [Not Recovered/Not Resolved]

NARRATIVE: CASE EVENT DATE: 2012
